FAERS Safety Report 22850248 (Version 5)
Quarter: 2024Q1

REPORT INFORMATION
  Report Type: Report from Study
  Country: IT (occurrence: IT)
  Receive Date: 20230822
  Receipt Date: 20240222
  Transmission Date: 20240410
  Serious: Yes (Other)
  Sender: FDA-Public Use
  Company Number: IT-UCBSA-2022061875

PATIENT
  Sex: Female

DRUGS (9)
  1. LACOSAMIDE [Suspect]
     Active Substance: LACOSAMIDE
     Indication: Epilepsy
     Dosage: 50 MILLIGRAM, 2X/DAY (BID)
     Dates: start: 202206, end: 2022
  2. LACOSAMIDE [Suspect]
     Active Substance: LACOSAMIDE
     Dosage: 100 MILLIGRAM, 2X/DAY (BID) (2X 50MG TABLETS IN THE MORNING AND 2X 50MG TABLETS IN THE EVENING)
     Dates: start: 20221013
  3. LACOSAMIDE [Suspect]
     Active Substance: LACOSAMIDE
     Dosage: 300 MILLIGRAM, ONCE DAILY (QD) 100MG TABLET IN THE MORNING AND TWO 100MG TABLETS IN THE EVENING
  4. LACOSAMIDE [Suspect]
     Active Substance: LACOSAMIDE
     Dosage: 150MG IN THE MORNING (USING ONE WHOLE AND ONE BROKEN 100MG TABLET) AND ONE 200MG TABLET IN THE EVENI
  5. LACOSAMIDE [Suspect]
     Active Substance: LACOSAMIDE
     Dosage: 200 MILLIGRAM, 2X/DAY (BID),1X 200MG TABLET AT 8 AM AND 1X 200MG TABLET AT 8 PM.
     Dates: start: 20230721
  6. LACOSAMIDE [Suspect]
     Active Substance: LACOSAMIDE
     Dosage: UNK
  7. LACOSAMIDE [Suspect]
     Active Substance: LACOSAMIDE
     Dosage: 200 MG, 56 FILM COATED TABLETS, 100 MG, 56 FILM COATED TABLETS
     Dates: start: 2023
  8. LACOSAMIDE [Suspect]
     Active Substance: LACOSAMIDE
     Dosage: 100 MILLIGRAM, 2X/DAY (BID) (1X100 MG 56 FILM-COATED TABLETS IN THE MORNING; 1X100 MG 56 FILM-COATED
     Dates: start: 202311
  9. CYMBALTA [Concomitant]
     Active Substance: DULOXETINE HYDROCHLORIDE
     Indication: Product used for unknown indication
     Dosage: 120 MILLIGRAM, 2X 60 MILLIGRAM IN THE MORNING

REACTIONS (20)
  - Seizure [Not Recovered/Not Resolved]
  - Epilepsy [Unknown]
  - Dizziness [Recovered/Resolved]
  - Insomnia [Unknown]
  - Somnolence [Unknown]
  - Nervousness [Unknown]
  - Tremor [Unknown]
  - Malaise [Recovered/Resolved]
  - Abdominal pain upper [Unknown]
  - Speech disorder [Unknown]
  - Mental disorder [Unknown]
  - Fear [Unknown]
  - Aphasia [Unknown]
  - Movement disorder [Unknown]
  - Fall [Recovered/Resolved]
  - Fatigue [Recovered/Resolved]
  - Influenza [Unknown]
  - Hypersomnia [Recovering/Resolving]
  - Intentional dose omission [Unknown]
  - Wrong technique in product usage process [Unknown]

NARRATIVE: CASE EVENT DATE: 20221001
